FAERS Safety Report 19982668 (Version 1)
Quarter: 2021Q4

REPORT INFORMATION
  Report Type: Spontaneous
  Country: US (occurrence: US)
  Receive Date: 20211020
  Receipt Date: 20211020
  Transmission Date: 20220303
  Serious: Yes (Death)
  Sender: FDA-Public Use
  Company Number: None

PATIENT
  Age: 76 Year
  Sex: Male

DRUGS (1)
  1. POMALYST [Suspect]
     Active Substance: POMALIDOMIDE
     Indication: Plasmacytoma
     Route: 048
     Dates: start: 20210927, end: 20211008

REACTIONS (9)
  - Neutropenia [None]
  - Cough [None]
  - Pyrexia [None]
  - Nausea [None]
  - Vomiting [None]
  - Headache [None]
  - Pain [None]
  - Abdominal pain upper [None]
  - Cardiac arrest [None]

NARRATIVE: CASE EVENT DATE: 20211013
